FAERS Safety Report 8801786 (Version 1)
Quarter: 2012Q4

REPORT INFORMATION
  Report Type: 
  Country: US (occurrence: US)
  Receive Date: 20120921
  Receipt Date: 20120921
  Transmission Date: 20130627
  Serious: Yes (Hospitalization, Other)
  Sender: FDA-Public Use
  Company Number: US-ELI_LILLY_AND_COMPANY-US201209004038

PATIENT
  Sex: Female

DRUGS (2)
  1. HUMULIN NPH [Suspect]
     Indication: DIABETES MELLITUS
     Dosage: 100 u, bid
     Dates: end: 20120815
  2. HUMULIN 30% REGULAR, 70% NPH [Concomitant]
     Indication: DIABETES MELLITUS
     Dosage: 10 u, bid
     Dates: start: 20120829

REACTIONS (3)
  - Tonsil cancer [Unknown]
  - Throat cancer [Unknown]
  - Pharyngeal haemorrhage [Unknown]
